FAERS Safety Report 17729350 (Version 1)
Quarter: 2020Q2

REPORT INFORMATION
  Report Type: Spontaneous
  Country: IT (occurrence: IT)
  Receive Date: 20200430
  Receipt Date: 20200430
  Transmission Date: 20200714
  Serious: Yes (Hospitalization)
  Sender: FDA-Public Use
  Company Number: IT-ALLERGAN-2017178US

PATIENT
  Sex: Female

DRUGS (1)
  1. ASENAPINE MALEATE - BP [Suspect]
     Active Substance: ASENAPINE MALEATE
     Indication: DEPRESSION
     Dosage: 45 MILLIGRAM, ONCE
     Route: 048
     Dates: start: 20200403, end: 20200403

REACTIONS (4)
  - Confusional state [Recovering/Resolving]
  - Depressed level of consciousness [Recovering/Resolving]
  - Overdose [Unknown]
  - Medication error [Unknown]

NARRATIVE: CASE EVENT DATE: 20200403
